FAERS Safety Report 21169652 (Version 1)
Quarter: 2022Q3

REPORT INFORMATION
  Report Type: Spontaneous
  Country: US (occurrence: US)
  Receive Date: 20220804
  Receipt Date: 20220804
  Transmission Date: 20221027
  Serious: No
  Sender: FDA-Public Use
  Company Number: US-BAUSCH-BL-2022-019159

PATIENT
  Age: 77 Year
  Sex: Female
  Weight: 58.112 kg

DRUGS (1)
  1. LOTEMAX SM [Suspect]
     Active Substance: LOTEPREDNOL ETABONATE
     Indication: Cataract operation
     Route: 047
     Dates: start: 20220729

REACTIONS (1)
  - Vision blurred [Recovering/Resolving]
